FAERS Safety Report 24217241 (Version 1)
Quarter: 2024Q3

REPORT INFORMATION
  Report Type: Spontaneous
  Country: ES (occurrence: ES)
  Receive Date: 20240816
  Receipt Date: 20240816
  Transmission Date: 20241017
  Serious: Yes (Hospitalization)
  Sender: SAMSUNG BIOEPIS
  Company Number: None

PATIENT
  Age: 28 Year
  Sex: Male

DRUGS (3)
  1. ETANERCEPT [Suspect]
     Active Substance: ETANERCEPT
     Indication: Undifferentiated spondyloarthritis
     Route: 058
     Dates: start: 202401, end: 20240222
  2. METHOTREXATE [Concomitant]
     Active Substance: METHOTREXATE
     Indication: Undifferentiated spondyloarthritis
     Route: 048
     Dates: start: 20221027
  3. FOLIC ACID [Concomitant]
     Active Substance: FOLIC ACID
     Indication: Product used for unknown indication
     Route: 048
     Dates: start: 20221027

REACTIONS (2)
  - Meningitis aseptic [Recovering/Resolving]
  - Off label use [Unknown]

NARRATIVE: CASE EVENT DATE: 20240215
